FAERS Safety Report 5648134-8 (Version None)
Quarter: 2008Q1

REPORT INFORMATION
  Report Type: 
  Country: None (occurrence: None)
  Receive Date: 20080229
  Receipt Date: 20080214
  Transmission Date: 20080703
  Serious: Yes (Other)
  Sender: FDA-Public Use
  Company Number: 2008000348

PATIENT
  Age: 62 Year
  Sex: Female

DRUGS (8)
  1. ERLOTINIB (ERLOTINIB HCI) (TABLET) (ERLOTINIB HCI) [Suspect]
     Indication: LUNG ADENOCARCINOMA
     Dosage: 150 MG, QD, ORAL
     Route: 048
     Dates: start: 20071225, end: 20080121
  2. MORPHINE [Concomitant]
  3. PRIMPERAN TAB [Concomitant]
  4. CALCIUM LACTATE (CALCIUM LACTATE) [Concomitant]
  5. GLYCYRON (GLYCYRON) [Concomitant]
  6. ALFAROL (ALFACALCIDOL) [Concomitant]
  7. SUCRALFATE [Concomitant]
  8. PREDNISOLONE [Concomitant]

REACTIONS (8)
  - ANAEMIA [None]
  - ANOREXIA [None]
  - CONSTIPATION [None]
  - DYSGEUSIA [None]
  - GASTRITIS [None]
  - HEPATIC FUNCTION ABNORMAL [None]
  - LUNG DISORDER [None]
  - PLEURAL EFFUSION [None]
